FAERS Safety Report 19164554 (Version 1)
Quarter: 2021Q2

REPORT INFORMATION
  Report Type: Spontaneous
  Country: US (occurrence: US)
  Receive Date: 20210421
  Receipt Date: 20210421
  Transmission Date: 20210717
  Serious: No
  Sender: FDA-Public Use
  Company Number: US-PFIZER INC-2021344145

PATIENT
  Age: 64 Year
  Sex: Female

DRUGS (1)
  1. IBRANCE [Suspect]
     Active Substance: PALBOCICLIB
     Indication: BREAST CANCER FEMALE
     Dosage: 125 MG, CYCLIC (TAKE 1 TAB PO FOR 21 DAYS THEN 7 DAYS OFF)
     Route: 048
     Dates: start: 20200916

REACTIONS (3)
  - Fatigue [Unknown]
  - Faeces soft [Unknown]
  - Product dose omission issue [Unknown]
